FAERS Safety Report 4712872-1 (Version None)
Quarter: 2005Q3

REPORT INFORMATION
  Report Type: 
  Country: None (occurrence: None)
  Receive Date: 20050712
  Receipt Date: 20050712
  Transmission Date: 20060218
  Serious: Yes (Other)
  Sender: FDA-Public Use
  Company Number: None

PATIENT
  Age: 84 Year
  Sex: Female

DRUGS (4)
  1. INTEGRILIN [Suspect]
     Indication: THERAPEUTIC PROCEDURE
     Dosage: 2MCG/KG/MIN   X 4 HOURS   INTRAVENOU
     Route: 042
     Dates: start: 20050427, end: 20050428
  2. ACTIVASE [Suspect]
     Indication: CORONARY ARTERY EMBOLISM
     Dosage: 20MG    ONCE   INTRACORON
     Route: 022
     Dates: start: 20050427, end: 20050427
  3. CLOPIDOGREL BISULFATE [Concomitant]
  4. HEPARIN [Concomitant]

REACTIONS (3)
  - HYPOTENSION [None]
  - RENAL FAILURE ACUTE [None]
  - RETROPERITONEAL HAEMORRHAGE [None]
